FAERS Safety Report 6948269 (Version 5)
Quarter: 2014Q3

REPORT INFORMATION
  Report Type: Spontaneous
  Country: US (occurrence: US)
  Receive Date: 20090323
  Receipt Date: 20140708
  Transmission Date: 20150326
  Serious: Yes (Hospitalization)
  Sender: FDA-Public Use
  Company Number: US-BAYER-200915405NA

PATIENT
  Age: 32 Year
  Sex: Female
  Weight: 77.98 kg

DRUGS (2)
  1. MIRENA [Suspect]
     Active Substance: LEVONORGESTREL
     Indication: CONTRACEPTION
     Dosage: CONTINUOUS
     Route: 015
     Dates: start: 20080801, end: 20090312
  2. PRENATAL VITAMINS [Concomitant]
     Active Substance: VITAMINS

REACTIONS (8)
  - Procedural pain [Recovered/Resolved]
  - Uterine perforation [Recovered/Resolved]
  - Injury [Recovered/Resolved]
  - Medical device discomfort [Recovered/Resolved]
  - Pelvic pain [Recovered/Resolved]
  - Emotional distress [None]
  - Abdominal pain lower [Recovered/Resolved]
  - Pain [Recovered/Resolved]

NARRATIVE: CASE EVENT DATE: 200808
